FAERS Safety Report 24551602 (Version 1)
Quarter: 2024Q4

REPORT INFORMATION
  Report Type: Spontaneous
  Country: CA (occurrence: CA)
  Receive Date: 20241026
  Receipt Date: 20241026
  Transmission Date: 20250115
  Serious: Yes (Hospitalization)
  Sender: AUROBINDO
  Company Number: CA-AUROBINDO-AUR-APL-2024-013541

PATIENT
  Age: 17 Year
  Sex: Female

DRUGS (47)
  1. DULOXETINE [Suspect]
     Active Substance: DULOXETINE
     Indication: Injection site pain
     Dosage: UNK
     Route: 065
  2. LIDOCAINE [Suspect]
     Active Substance: LIDOCAINE
     Indication: Injection site pain
     Dosage: UNK
     Route: 065
  3. LIDOCAINE [Suspect]
     Active Substance: LIDOCAINE
     Indication: Pain
     Dosage: UNK
     Route: 061
  4. PREGABALIN [Suspect]
     Active Substance: PREGABALIN
     Indication: Pain
     Dosage: UNK
     Route: 065
  5. PREGABALIN [Suspect]
     Active Substance: PREGABALIN
     Indication: Injection site pain
  6. PREGABALIN [Suspect]
     Active Substance: PREGABALIN
     Indication: Injection site pain
     Dosage: UNK
     Route: 065
  7. PREGABALIN [Suspect]
     Active Substance: PREGABALIN
     Dosage: 25 MILLIGRAM 1 EVERY 1 DAYS
     Route: 065
  8. PREGABALIN [Suspect]
     Active Substance: PREGABALIN
     Dosage: 25 MILLIGRAM 1 EVERY 1 DAYS
     Route: 065
  9. COLCHICINE [Suspect]
     Active Substance: COLCHICINE
     Indication: Type III immune complex mediated reaction
     Dosage: UNK
     Route: 065
  10. DICLOFENAC [Suspect]
     Active Substance: DICLOFENAC
     Indication: Injection site pain
     Dosage: UNK
     Route: 061
  11. DULOXETINE HYDROCHLORIDE [Suspect]
     Active Substance: DULOXETINE HYDROCHLORIDE
     Indication: Injection site pain
     Dosage: UNK
     Route: 065
  12. DULOXETINE HYDROCHLORIDE [Suspect]
     Active Substance: DULOXETINE HYDROCHLORIDE
     Indication: Pain
  13. EMLA [Suspect]
     Active Substance: LIDOCAINE\PRILOCAINE
     Indication: Injection site pain
     Dosage: UNK
     Route: 065
  14. EMLA [Suspect]
     Active Substance: LIDOCAINE\PRILOCAINE
     Indication: Pain
     Dosage: UNK
     Route: 061
  15. HYDROXYCHLOROQUINE [Suspect]
     Active Substance: HYDROXYCHLOROQUINE
     Indication: Type III immune complex mediated reaction
     Dosage: UNK
     Route: 065
  16. INSULIN HUMAN [Suspect]
     Active Substance: INSULIN HUMAN
     Indication: Type 1 diabetes mellitus
     Dosage: UNK
     Route: 033
  17. KETAMINE [Suspect]
     Active Substance: KETAMINE
     Indication: Injection site pain
     Dosage: UNK
     Route: 065
  18. KETAMINE [Suspect]
     Active Substance: KETAMINE
     Indication: Pain
     Dosage: UNK
     Route: 061
  19. LIDOCAINE [Suspect]
     Active Substance: LIDOCAINE
     Indication: Pain
     Dosage: UNK
     Route: 061
  20. LIDOCAINE [Suspect]
     Active Substance: LIDOCAINE
     Indication: Injection site pain
  21. METHOTREXATE SODIUM [Suspect]
     Active Substance: METHOTREXATE SODIUM
     Indication: Type III immune complex mediated reaction
     Dosage: UNK
     Route: 065
  22. NAPROXEN [Suspect]
     Active Substance: NAPROXEN
     Indication: Injection site pain
     Dosage: UNK
     Route: 065
  23. NAPROXEN [Suspect]
     Active Substance: NAPROXEN
     Indication: Pain
  24. TACROLIMUS [Suspect]
     Active Substance: TACROLIMUS
     Indication: Type III immune complex mediated reaction
     Dosage: UNK
     Route: 065
  25. VOLTAREN [Suspect]
     Active Substance: DICLOFENAC SODIUM
     Indication: Injection site pain
     Dosage: UNK
     Route: 065
  26. VOLTAREN [Suspect]
     Active Substance: DICLOFENAC SODIUM
     Indication: Pain
     Dosage: UNK
     Route: 061
  27. DICLOFENAC DIETHYLAMINE [Suspect]
     Active Substance: DICLOFENAC DIETHYLAMINE
     Indication: Pain
     Dosage: UNK
     Route: 065
  28. COLCHICINE [Concomitant]
     Active Substance: COLCHICINE
     Indication: Product used for unknown indication
     Dosage: UNK
     Route: 065
  29. HYDROXYCHLOROQUINE [Concomitant]
     Active Substance: HYDROXYCHLOROQUINE
     Indication: Type III immune complex mediated reaction
     Dosage: UNK
     Route: 065
  30. INSULIN NOS [Concomitant]
     Active Substance: INSULIN NOS
     Indication: Type 1 diabetes mellitus
     Dosage: UNK
     Route: 065
  31. INSULIN ASPART [Concomitant]
     Active Substance: INSULIN ASPART
     Indication: Type 1 diabetes mellitus
     Dosage: UNK
     Route: 065
  32. INSULIN ASPART [Concomitant]
     Active Substance: INSULIN ASPART
     Dosage: UNK
     Route: 058
  33. INSULIN DEGLUDEC [Concomitant]
     Active Substance: INSULIN DEGLUDEC
     Indication: Type 1 diabetes mellitus
     Dosage: UNK
     Route: 065
  34. INSULIN DEGLUDEC [Concomitant]
     Active Substance: INSULIN DEGLUDEC
     Dosage: UNK
     Route: 058
  35. INSULIN GLARGINE [Concomitant]
     Active Substance: INSULIN GLARGINE
     Indication: Type 1 diabetes mellitus
     Dosage: UNK
     Route: 065
  36. INSULIN GLULISINE [Concomitant]
     Active Substance: INSULIN GLULISINE
     Indication: Type 1 diabetes mellitus
     Dosage: UNK
     Route: 065
  37. INSULIN GLULISINE [Concomitant]
     Active Substance: INSULIN GLULISINE
     Dosage: UNK
     Route: 058
  38. INSULIN LISPRO [Concomitant]
     Active Substance: INSULIN LISPRO
     Indication: Type 1 diabetes mellitus
     Dosage: UNK
     Route: 065
  39. INSULIN LISPRO [Concomitant]
     Active Substance: INSULIN LISPRO
     Dosage: UNK
     Route: 058
  40. METHOTREXATE [Concomitant]
     Active Substance: METHOTREXATE
     Indication: Product used for unknown indication
     Dosage: UNK
     Route: 065
  41. TACROLIMUS [Concomitant]
     Active Substance: TACROLIMUS
     Indication: Product used for unknown indication
     Dosage: UNK
     Route: 065
  42. INSULIN NOS [Concomitant]
     Active Substance: INSULIN NOS
     Indication: Type 1 diabetes mellitus
     Dosage: UNK
     Route: 058
  43. INSULIN NOS [Concomitant]
     Active Substance: INSULIN NOS
     Indication: Type 1 diabetes mellitus
     Dosage: UNK
     Route: 065
  44. INSULIN GLARGINE [Concomitant]
     Active Substance: INSULIN GLARGINE
     Indication: Type 1 diabetes mellitus
     Dosage: UNK
     Route: 058
  45. COLCHICINE [Concomitant]
     Active Substance: COLCHICINE
     Indication: Type III immune complex mediated reaction
     Dosage: UNK
     Route: 065
  46. INSULIN HUMAN [Concomitant]
     Active Substance: INSULIN HUMAN
     Indication: Type 1 diabetes mellitus
     Dosage: UNK
     Route: 065
  47. TACROLIMUS [Concomitant]
     Active Substance: TACROLIMUS
     Indication: Type III immune complex mediated reaction
     Dosage: UNK
     Route: 065

REACTIONS (7)
  - Condition aggravated [Unknown]
  - Drug ineffective [Unknown]
  - Drug ineffective for unapproved indication [Unknown]
  - Off label use [Unknown]
  - Therapy non-responder [Unknown]
  - Medical device site abscess [Unknown]
  - Medical device site cellulitis [Unknown]
